FAERS Safety Report 8883240 (Version 1)
Quarter: 2012Q4

REPORT INFORMATION
  Report Type: 
  Country: BR (occurrence: BR)
  Receive Date: 20121102
  Receipt Date: 20121102
  Transmission Date: 20130627
  Serious: Yes (Other)
  Sender: FDA-Public Use
  Company Number: BR-ASTRAZENECA-2012SE82187

PATIENT
  Age: 805 Month
  Sex: Female
  Weight: 64 kg

DRUGS (5)
  1. ATACAND [Suspect]
     Indication: HYPERTENSION
     Route: 048
     Dates: start: 2009, end: 201206
  2. ATACAND [Suspect]
     Indication: HYPERTENSION
     Route: 048
     Dates: start: 201206, end: 20121021
  3. ATACAND [Suspect]
     Indication: HYPERTENSION
     Route: 048
     Dates: start: 20121024
  4. LIPITOR [Concomitant]
     Indication: BLOOD CHOLESTEROL INCREASED
     Route: 048
     Dates: start: 2009
  5. OS-CAL [Concomitant]
     Indication: OSTEOPENIA
     Route: 048
     Dates: start: 201106

REACTIONS (5)
  - Osteoarthritis [Not Recovered/Not Resolved]
  - Osteopenia [Unknown]
  - Weight increased [Not Recovered/Not Resolved]
  - Blood pressure increased [Not Recovered/Not Resolved]
  - Drug dose omission [Not Recovered/Not Resolved]
